FAERS Safety Report 15107778 (Version 1)
Quarter: 2018Q3

REPORT INFORMATION
  Report Type: Spontaneous
  Country: US (occurrence: US)
  Receive Date: 20180704
  Receipt Date: 20180704
  Transmission Date: 20181010
  Serious: Yes (Hospitalization, Other)
  Sender: FDA-Public Use
  Company Number: US-ASTRAZENECA-2018SE84001

PATIENT
  Sex: Female

DRUGS (1)
  1. FARXIGA [Suspect]
     Active Substance: DAPAGLIFLOZIN PROPANEDIOL
     Indication: TYPE 2 DIABETES MELLITUS
     Route: 048
     Dates: start: 2018

REACTIONS (5)
  - Hypoaesthesia [Unknown]
  - Renal injury [Unknown]
  - Urinary bladder haemorrhage [Unknown]
  - Myocardial infarction [Unknown]
  - Diabetic ketoacidosis [Unknown]
